FAERS Safety Report 5156165-X (Version None)
Quarter: 2006Q4

REPORT INFORMATION
  Report Type: 
  Country: None (occurrence: None)
  Receive Date: 20061122
  Receipt Date: 20061107
  Transmission Date: 20070319
  Serious: Yes (Hospitalization, Other)
  Sender: FDA-Public Use
  Company Number: US-ELI_LILLY_AND_COMPANY-US200611003814

PATIENT
  Age: 39 Year
  Sex: Male

DRUGS (3)
  1. FLUOXETINE HYDROCHLORIDE [Suspect]
     Indication: OBSESSIVE-COMPULSIVE DISORDER
     Dosage: 80 MG, DAILY (1/D)
     Route: 048
  2. FLUOXETINE HYDROCHLORIDE [Suspect]
     Route: 048
  3. PYRILAMINE MALEATE [Concomitant]
     Dosage: 72 TABLETS
     Route: 048

REACTIONS (5)
  - INTENTIONAL OVERDOSE [None]
  - LOSS OF CONSCIOUSNESS [None]
  - MANIA [None]
  - NAUSEA [None]
  - SOMNOLENCE [None]
